FAERS Safety Report 10154114 (Version 1)
Quarter: 2014Q2

REPORT INFORMATION
  Report Type: Report from Study
  Country: US (occurrence: US)
  Receive Date: 20140506
  Receipt Date: 20140506
  Transmission Date: 20141212
  Serious: Yes (Hospitalization)
  Sender: FDA-Public Use
  Company Number: US-JNJFOC-20140419692

PATIENT
  Age: 11 Year
  Sex: Male
  Weight: 45.9 kg

DRUGS (3)
  1. REMICADE [Suspect]
     Indication: COLITIS ULCERATIVE
     Route: 042
     Dates: start: 20130606, end: 20130923
  2. BUDESONIDE [Concomitant]
     Route: 065
  3. HUMIRA [Concomitant]
     Route: 065
     Dates: start: 20130923, end: 20131114

REACTIONS (1)
  - Colitis ulcerative [Recovered/Resolved]
